FAERS Safety Report 17254714 (Version 2)
Quarter: 2020Q1

REPORT INFORMATION
  Report Type: Report from Study
  Country: None (occurrence: US)
  Receive Date: 20200109
  Receipt Date: 20200220
  Transmission Date: 20200409
  Serious: Yes (Hospitalization, Other)
  Sender: FDA-Public Use
  Company Number: US-ABBVIE-20K-163-3221345-00

PATIENT
  Sex: Female

DRUGS (1)
  1. VENCLEXTA [Suspect]
     Active Substance: VENETOCLAX
     Indication: CHLOROMA (IN REMISSION)
     Route: 048
     Dates: start: 20191214

REACTIONS (6)
  - Adverse drug reaction [Unknown]
  - Constipation [Not Recovered/Not Resolved]
  - Pulmonary embolism [Unknown]
  - Hospice care [Unknown]
  - Hospitalisation [Unknown]
  - Arthritis [Unknown]
